FAERS Safety Report 14531257 (Version 1)
Quarter: 2018Q1

REPORT INFORMATION
  Report Type: Report from Study
  Country: US (occurrence: US)
  Receive Date: 20180214
  Receipt Date: 20180214
  Transmission Date: 20180509
  Serious: Yes (Other)
  Sender: FDA-Public Use
  Company Number: US-AMGEN-USASL2018017499

PATIENT
  Age: 78 Year
  Sex: Female

DRUGS (1)
  1. REPATHA [Suspect]
     Active Substance: EVOLOCUMAB
     Indication: PRODUCT USED FOR UNKNOWN INDICATION
     Dosage: 420 MG, QMO
     Route: 058
     Dates: start: 201712

REACTIONS (7)
  - Dyspnoea [Unknown]
  - Cough [Unknown]
  - Odynophagia [Unknown]
  - Pruritus generalised [Unknown]
  - Rhinorrhoea [Unknown]
  - Gait disturbance [Unknown]
  - Pharyngeal oedema [Unknown]

NARRATIVE: CASE EVENT DATE: 201712
